FAERS Safety Report 25044514 (Version 5)
Quarter: 2025Q4

REPORT INFORMATION
  Report Type: Report from Study
  Country: EU (occurrence: EU)
  Receive Date: 20250306
  Receipt Date: 20251203
  Transmission Date: 20260118
  Serious: Yes (Hospitalization)
  Sender: MUNDIPHARMA EDO
  Company Number: EU-NAPPMUNDI-GBR-2025-0123793

PATIENT
  Age: 10 Year
  Sex: Female
  Weight: 48.9 kg

DRUGS (18)
  1. REZAFUNGIN ACETATE [Suspect]
     Active Substance: REZAFUNGIN ACETATE
     Indication: Infection prophylaxis
     Dosage: 200 MILLIGRAM, WEEKLY
     Dates: start: 20250115, end: 20250204
  2. PEG/L-ASPARAGINASE [Suspect]
     Active Substance: PEGASPARGASE
     Indication: Acute lymphocytic leukaemia
     Dosage: 2100 IE  1 PER 14 DAYS
  3. PEG/L-ASPARAGINASE [Suspect]
     Active Substance: PEGASPARGASE
     Dosage: INFUSION FLUID
     Route: 065
  4. DEXAMETHASONE [Concomitant]
     Active Substance: DEXAMETHASONE
     Indication: Product used for unknown indication
     Dosage: 2.9 UNK 3DD
     Route: 048
  5. DEXAMETHASONE [Concomitant]
     Active Substance: DEXAMETHASONE
     Dosage: TABLET, 0,5 MG (MILLIGRAM)
     Route: 048
  6. VINCRISTINE [Concomitant]
     Active Substance: VINCRISTINE
     Indication: Product used for unknown indication
     Dosage: 2 UNK, WEEKLY
     Dates: start: 20250115
  7. VINCRISTINE [Concomitant]
     Active Substance: VINCRISTINE
     Dosage: INJECTION SOLUTION, 1 MG/ML (MILLIGRAM PER MILLILITER)
     Route: 065
  8. CIPROFLOXACIN [Concomitant]
     Active Substance: CIPROFLOXACIN
     Indication: Product used for unknown indication
     Dosage: 500 MILLIGRAM 2DD
     Route: 048
     Dates: start: 20250113, end: 20250205
  9. SULFAMETHOXAZOLE\TRIMETHOPRIM [Concomitant]
     Active Substance: SULFAMETHOXAZOLE\TRIMETHOPRIM
     Indication: Product used for unknown indication
     Dosage: UNK, 3/WEEK
     Route: 048
     Dates: start: 20250115, end: 20250205
  10. SULFAMETHOXAZOLE\TRIMETHOPRIM [Concomitant]
     Active Substance: SULFAMETHOXAZOLE\TRIMETHOPRIM
     Dosage: TABLET, 160/800 MG (MILLIGRAM)
     Route: 048
  11. DAUNORUBICIN [Concomitant]
     Active Substance: DAUNORUBICIN
     Indication: Product used for unknown indication
     Dosage: 36 UNK, 1/WEEK
  12. POLYETHYLENE GLYCOLS [Concomitant]
     Active Substance: POLYETHYLENE GLYCOLS
     Indication: Product used for unknown indication
     Dosage: 20 GRAM 1DD IF NEEDED
     Route: 048
  13. VITAMIN K [Concomitant]
     Active Substance: PHYTONADIONE
     Indication: Product used for unknown indication
     Dosage: 5 MILLIGRAM 1DD
     Route: 048
  14. GRANISETRON [Concomitant]
     Active Substance: GRANISETRON
     Indication: Product used for unknown indication
     Dosage: 2 MILLIGRAM 2 DD IF NEEDED
     Route: 048
  15. GRANISETRON [Concomitant]
     Active Substance: GRANISETRON
     Dosage: TABLET, 1 MG (MILLIGRAM)
     Route: 048
  16. PEGASPARGASE [Concomitant]
     Active Substance: PEGASPARGASE
     Indication: Acute lymphocytic leukaemia
     Dosage: INFUSION FLUID
     Route: 065
  17. DAUNORUBICIN [Concomitant]
     Active Substance: DAUNORUBICIN
     Indication: Product used for unknown indication
     Dosage: SOLUTION FOR INFUSION, 20 MG (MILLIGRAM)
     Route: 065
  18. CIPROFLOXACIN [Concomitant]
     Active Substance: CIPROFLOXACIN
     Indication: Product used for unknown indication
     Dosage: TABLET, 500 MG (MILLIGRAM)
     Route: 048

REACTIONS (6)
  - Hepatotoxicity [Recovered/Resolved]
  - Respiratory syncytial virus infection [Recovered/Resolved]
  - Venoocclusive disease [Recovered/Resolved]
  - Hepatomegaly [Recovered/Resolved]
  - Hyperbilirubinaemia [Recovered/Resolved]
  - Cholestasis [Recovered/Resolved]

NARRATIVE: CASE EVENT DATE: 20250205
